FAERS Safety Report 24288278 (Version 1)
Quarter: 2024Q3

REPORT INFORMATION
  Report Type: Spontaneous
  Country: GB (occurrence: GB)
  Receive Date: 20240905
  Receipt Date: 20240905
  Transmission Date: 20241017
  Serious: Yes (Other)
  Sender: SANDOZ
  Company Number: GB-MHRA-TPP47231726C4678899YC1725384570438

PATIENT
  Age: 69 Year
  Sex: Male
  Weight: 109 kg

DRUGS (8)
  1. PIOGLITAZONE HYDROCHLORIDE [Suspect]
     Active Substance: PIOGLITAZONE HYDROCHLORIDE
     Indication: Diabetes mellitus
     Route: 065
  2. AMLODIPINE [Concomitant]
     Active Substance: AMLODIPINE BESYLATE
     Indication: Ill-defined disorder
     Dosage: IN THE MORNIN...
     Route: 065
     Dates: start: 20220706
  3. ATORVASTATIN [Concomitant]
     Active Substance: ATORVASTATIN
     Indication: Ill-defined disorder
     Route: 065
     Dates: start: 20170131
  4. CLOPIDOGREL [Concomitant]
     Active Substance: CLOPIDOGREL BISULFATE
     Indication: Ill-defined disorder
     Route: 065
     Dates: start: 20151030
  5. LEVOTHYROXINE [Concomitant]
     Active Substance: LEVOTHYROXINE\LEVOTHYROXINE SODIUM
     Indication: Ill-defined disorder
     Dosage: IN THE MORNIN...
     Route: 065
     Dates: start: 20230525
  6. LINAGLIPTIN [Concomitant]
     Active Substance: LINAGLIPTIN
     Indication: Ill-defined disorder
     Dosage: AS DIRECTED F...
     Route: 065
     Dates: start: 20210616
  7. METFORMIN [Concomitant]
     Active Substance: METFORMIN HYDROCHLORIDE
     Indication: Ill-defined disorder
     Dosage: WITH BREAKFAST.
     Route: 065
     Dates: start: 20230309
  8. RAMIPRIL [Concomitant]
     Active Substance: RAMIPRIL
     Indication: Ill-defined disorder
     Route: 065
     Dates: start: 20151030

REACTIONS (1)
  - Arthralgia [Unknown]
